FAERS Safety Report 23334496 (Version 1)
Quarter: 2023Q4

REPORT INFORMATION
  Report Type: Spontaneous
  Country: ES (occurrence: ES)
  Receive Date: 20231224
  Receipt Date: 20231224
  Transmission Date: 20240110
  Serious: Yes (Death, Other)
  Sender: FDA-Public Use
  Company Number: ES-SUN PHARMACEUTICAL INDUSTRIES LTD-2022R1-331138

PATIENT

DRUGS (2)
  1. AZACITIDINE [Suspect]
     Active Substance: AZACITIDINE
     Indication: Acute myeloid leukaemia
     Dosage: 75 MILLIGRAM/SQ. METER (75MG/M2 SC FOR 7DAYS, EITHER D1-5, 8-9, OR D1-7 EVERY CYCLE) IN A 28DAYS CYC
     Route: 058
  2. IADADEMSTAT [Suspect]
     Active Substance: IADADEMSTAT
     Indication: Acute myeloid leukaemia
     Dosage: 60 OR 90?G/M2/D (PO, 5D ON, 2D OFF WEEKLY)
     Route: 048

REACTIONS (1)
  - Haemorrhage intracranial [Fatal]
